FAERS Safety Report 25467992 (Version 2)
Quarter: 2025Q4

REPORT INFORMATION
  Report Type: Other
  Country: EU (occurrence: EU)
  Receive Date: 20250623
  Receipt Date: 20251014
  Transmission Date: 20260117
  Serious: Yes (Life-Threatening, Hospitalization, Other)
  Sender: SERVIER
  Company Number: None

PATIENT

DRUGS (53)
  1. PEGASPARGASE [Suspect]
     Active Substance: PEGASPARGASE
     Indication: Leukaemia recurrent
     Dosage: 2500 IU/M2/DOSE P.I. (2 H) (DAYS 12 AND 26)INDUCTION PHASE
     Route: 065
  2. PEGASPARGASE [Suspect]
     Active Substance: PEGASPARGASE
     Indication: Acute lymphocytic leukaemia
     Dosage: 2500 IU/M2/DOSE P.I. (2 H), DAY 8
     Route: 065
  3. PEGASPARGASE [Suspect]
     Active Substance: PEGASPARGASE
     Dosage: 1000 IU/M2 DAY 4 OF WEEK 1, DAY 4 OF WEEK 3 (RELAPSE THERAPY)
     Route: 042
  4. PEGASPARGASE [Suspect]
     Active Substance: PEGASPARGASE
     Dosage: 1000 IU/M2 I.V., DAY 6 OF WEEK 13, 19 AND 25
     Route: 042
  5. PEGASPARGASE [Suspect]
     Active Substance: PEGASPARGASE
     Dosage: 1000 IU/M2 I.V., DAY 6 OF WEEK 13, 19 AND 25
     Route: 065
  6. PREDNISOLONE [Suspect]
     Active Substance: PREDNISOLONE
     Indication: Leukaemia recurrent
     Dosage: 10 MG DAY 1 OF WEEK 5-7
     Route: 065
  7. PREDNISOLONE [Suspect]
     Active Substance: PREDNISOLONE
     Indication: Acute lymphocytic leukaemia
     Dosage: 10 MG I.TH, DAY 3 OF WEEK 9-10
     Route: 065
  8. IDARUBICIN HYDROCHLORIDE [Suspect]
     Active Substance: IDARUBICIN HYDROCHLORIDE
     Indication: Leukaemia recurrent
     Dosage: 6 MG/M2 DAY 1 OF WEEK 5-8
     Route: 042
  9. CYCLOPHOSPHAMIDE [Suspect]
     Active Substance: CYCLOPHOSPHAMIDE
     Indication: Leukaemia recurrent
     Dosage: 1000 MG/M2/DOSE P.I. (1 H) (DAYS 50 AND 64) CONSOLIDATION BSHORT
     Route: 065
  10. CYCLOPHOSPHAMIDE [Suspect]
     Active Substance: CYCLOPHOSPHAMIDE
     Indication: Acute lymphocytic leukaemia
     Dosage: 1000 MG/M2/DOSE P.I. (1 H) (DAY 36)
     Route: 065
  11. CYTARABINE [Suspect]
     Active Substance: CYTARABINE
     Indication: Leukaemia recurrent
     Dosage: 75 MG/M2/DOSE I.V., 2 BLOCKS OF 4 DAYS EACH (DAYS 38-41, 45-48)
     Route: 042
  12. CYTARABINE [Suspect]
     Active Substance: CYTARABINE
     Indication: Acute lymphocytic leukaemia
     Dosage: 3 G/M2 I.V. EVERY 12 HOURS (DAY 1 AND 2 OF WEEK 3)
     Route: 042
  13. CYTARABINE [Suspect]
     Active Substance: CYTARABINE
     Dosage: 30 MG I.TH.(DAY 1 AND 6 OF WEEK 1, DAY 5 OF WEEK 3 (DIRECTLY BEFORE OR UNTIL 1 HOUR AFTER START OF T
     Route: 065
  14. CYTARABINE [Suspect]
     Active Substance: CYTARABINE
     Dosage: 30 MG I.TH.(DAY 1 OF WEEK 5-7)
     Route: 065
  15. CYTARABINE [Suspect]
     Active Substance: CYTARABINE
     Dosage: 75 MG/M2 I.V. DAY 3-6 OF WEEK 9 AND 10
     Route: 042
  16. CYTARABINE [Suspect]
     Active Substance: CYTARABINE
     Dosage: 30 MG I.TH. (DAY 3 OF WEEK 9-10)
     Route: 065
  17. CYTARABINE [Suspect]
     Active Substance: CYTARABINE
     Dosage: 2 G/M2 I.V. EVERY 12 HOURS, DAY 5 OF WEEK 13, 19, AND 25
     Route: 042
  18. CYTARABINE [Suspect]
     Active Substance: CYTARABINE
     Dosage: 30 MG I.TH., DAY 1 OF WEEK 13, 19 AND 25 (DIRECTLY BEFORE OR UNTIL 1 HOUR AFTER START OF THE METHOTR
     Route: 065
  19. DAUNORUBICIN [Suspect]
     Active Substance: DAUNORUBICIN
     Indication: Leukaemia recurrent
     Dosage: 30 MG/M2/DOSE P.I. (1 H) (DAYS 8, 15, 22 AND 29)INDUCTION PHASE
     Route: 065
  20. DAUNORUBICIN [Suspect]
     Active Substance: DAUNORUBICIN
     Indication: Acute lymphocytic leukaemia
  21. DEXAMETHASONE [Suspect]
     Active Substance: DEXAMETHASONE
     Indication: Leukaemia recurrent
     Dosage: 10 MG/M2, 1X/DAY DIVIDED INTO 3 DOSES/DAY (DAYS 1-21 (FROM DAY 22 TAPERING OVER 9 DAYS, WITH HALVING
     Route: 048
  22. DEXAMETHASONE [Suspect]
     Active Substance: DEXAMETHASONE
     Indication: Acute lymphocytic leukaemia
     Dosage: 20 MG/M2 DIVIDED IN 2 DAILY DOSES DAY 1-5 OF WEEK 1 AND 3
     Route: 048
  23. DEXAMETHASONE [Suspect]
     Active Substance: DEXAMETHASONE
     Dosage: 6 MG/M2 P.O. DIVIDED IN 2 DAILY DOSES ON DAY 1-7 OF WEEK 5 AND 6 (TAPERING THE DOSE TO 3 MG/M? ON DA
     Route: 048
  24. DEXAMETHASONE [Suspect]
     Active Substance: DEXAMETHASONE
     Dosage: 20 MG/M2 P.O., DIVIDED IN 2 DAILY DOSES - DAY 1-5, AND 10 MG/M2 ON DAY 6 OF WEEK 13, 19 AND 25
     Route: 048
  25. DOXORUBICIN HYDROCHLORIDE [Suspect]
     Active Substance: DOXORUBICIN HYDROCHLORIDE
     Indication: Leukaemia recurrent
     Dosage: 30 MG/M2/DOSE P.I. (1 H) DAYS 8, 15, 22 AND 29 (PROTOCOL II)
     Route: 065
  26. DOXORUBICIN HYDROCHLORIDE [Suspect]
     Active Substance: DOXORUBICIN HYDROCHLORIDE
     Indication: Acute lymphocytic leukaemia
  27. MERCAPTOPURINE [Suspect]
     Active Substance: MERCAPTOPURINE
     Indication: Leukaemia recurrent
     Dosage: 60 MG/M2, 1X/DAY (DAYS 36-49)CONSOLIDATION A  )
     Route: 048
  28. MERCAPTOPURINE [Suspect]
     Active Substance: MERCAPTOPURINE
     Indication: Acute lymphocytic leukaemia
     Dosage: 60 MG/M2, 1X/DAY (DAYS 50-63) CONSOLIDATION BSHORT )
     Route: 048
  29. MERCAPTOPURINE [Suspect]
     Active Substance: MERCAPTOPURINE
     Dosage: 25 MG/M2, 1X/DAY DAY 1-56/ PROTOCOL M
     Route: 048
  30. MERCAPTOPURINE [Suspect]
     Active Substance: MERCAPTOPURINE
     Dosage: 50 MG/M2, 1X/DAY (MAINTENANCE THERAPY)
     Route: 048
  31. MERCAPTOPURINE [Suspect]
     Active Substance: MERCAPTOPURINE
     Dosage: 100 MG/M2 DAY 1-5 OF WEEK 13, 19 AND 25
     Route: 048
  32. METHOTREXATE [Suspect]
     Active Substance: METHOTREXATE
     Indication: Leukaemia recurrent
     Dosage: 10 MG DAY 1, 12, 33 (INDUCTION PHASE)
     Route: 065
  33. METHOTREXATE [Suspect]
     Active Substance: METHOTREXATE
     Indication: Acute lymphocytic leukaemia
     Dosage: 12 MG I.TH. (DAY 3 OF WEEK 9-10)
     Route: 037
  34. METHOTREXATE [Suspect]
     Active Substance: METHOTREXATE
     Dosage: 1 G/M2 I.V. OVER 36 HOURS STARTING, DAY 1 OF WEEK 13, 19 AND 25
     Route: 065
  35. METHOTREXATE [Suspect]
     Active Substance: METHOTREXATE
     Dosage: 10 MG I.TH (DAY 45) CONSOLIDATION A
     Route: 037
  36. METHOTREXATE [Suspect]
     Active Substance: METHOTREXATE
     Dosage: 10 MG I.TH (DAY 59) CONSOLIDATION BSHORT
     Route: 037
  37. METHOTREXATE [Suspect]
     Active Substance: METHOTREXATE
     Dosage: 5000 MG/M2/DOSE P.I. (24 H) (DAYS 8, 22, 36 AND 50) (PROTOCOL M)
     Route: 065
  38. METHOTREXATE [Suspect]
     Active Substance: METHOTREXATE
     Dosage: 10 MG I.TH (DAYS 8, 22, 36 AND 50 (DURING HIGH-DOSE-MTX INFUSION)) PROTOCOL M
     Route: 037
  39. METHOTREXATE [Suspect]
     Active Substance: METHOTREXATE
     Dosage: 10 MG I.TH (DAYS 38 AND 45)PROTOCOL II
     Route: 037
  40. METHOTREXATE [Suspect]
     Active Substance: METHOTREXATE
     Dosage: 20 MG/M2/DOSE P.O.,ONCE A WEEK, (MAINTENANCE THERAPY)
     Route: 048
  41. METHOTREXATE [Suspect]
     Active Substance: METHOTREXATE
     Dosage: 1 G/M2 I.V. DAY 1 OF WEEK 1 (OVER 36 HOURS)
     Route: 042
  42. METHOTREXATE [Suspect]
     Active Substance: METHOTREXATE
     Dosage: 12 MG I.TH. (DAY 1 OF WEEK 5-7)
     Route: 037
  43. METHOTREXATE [Suspect]
     Active Substance: METHOTREXATE
     Dosage: 12 MG I.TH, DAY 1 OF WEEK 13, 19 AND 25 (DIRECTLY BEFORE OR UNTIL 1 HOUR AFTER START OF THE METHOTRE
     Route: 037
  44. METHOTREXATE [Suspect]
     Active Substance: METHOTREXATE
     Dosage: 12 MG I.TH
     Route: 037
  45. PREDNISONE [Suspect]
     Active Substance: PREDNISONE
     Indication: Leukaemia recurrent
     Dosage: 60 MG/M2/DAY P.O. DIVIDED INTO 3 DOSES PER DAY (DAYS 1-28 (FROM DAY 29, TAPERING OVER 9 DAYS WITH HA
     Route: 048
  46. PREDNISONE [Suspect]
     Active Substance: PREDNISONE
     Indication: Acute lymphocytic leukaemia
  47. THIOGUANINE [Suspect]
     Active Substance: THIOGUANINE
     Indication: Leukaemia recurrent
     Dosage: 60 MG/M2, 1X/DAY DAYS 36-49
     Route: 048
  48. THIOGUANINE [Suspect]
     Active Substance: THIOGUANINE
     Indication: Acute lymphocytic leukaemia
     Dosage: 60 MG/M2 DAY 1-7 OF WEEK 9 AND 10
     Route: 048
  49. VINCRISTINE [Suspect]
     Active Substance: VINCRISTINE
     Indication: Leukaemia recurrent
     Dosage: 1.5 MG/M2/DOSE (DAYS 8, 15, 22, 29) INDUCTION PHASE
     Route: 042
  50. VINCRISTINE [Suspect]
     Active Substance: VINCRISTINE
     Indication: Acute lymphocytic leukaemia
     Dosage: 1.5 MG/M2/DOSE (DAYS 8, 15, 22, 29)
     Route: 042
  51. VINCRISTINE [Suspect]
     Active Substance: VINCRISTINE
     Dosage: 1.5 MG/M2/DOSE DAY 1 AND 6 OF WEEK 1, DAY 1 OF WEEK 3
     Route: 042
  52. VINCRISTINE [Suspect]
     Active Substance: VINCRISTINE
     Dosage: 1.5 MG/M2/DOSE DAY 1 AND 6 OF WEEK 1, DAY 1 OF WEEK 5-8
     Route: 042
  53. VINCRISTINE [Suspect]
     Active Substance: VINCRISTINE
     Dosage: 1.5 MG/M2/DOSE DAY 1 AND 6 OF WEEK 13, 19 AND 25
     Route: 065

REACTIONS (2)
  - Fournier^s gangrene [Recovered/Resolved]
  - Neutropenia [Recovered/Resolved]
